FAERS Safety Report 5571411-6 (Version None)
Quarter: 2007Q4

REPORT INFORMATION
  Report Type: 
  Country: None (occurrence: None)
  Receive Date: 20071221
  Receipt Date: 20071212
  Transmission Date: 20080405
  Serious: No
  Sender: FDA-Public Use
  Company Number: A0689626A

PATIENT
  Age: 43 Year
  Sex: Female
  Weight: 56.8 kg

DRUGS (1)
  1. FLUTICASONE PROPIONATE [Suspect]
     Indication: SINUS DISORDER
     Dosage: 2SPR SINGLE DOSE
     Route: 045
     Dates: start: 20071017, end: 20071017

REACTIONS (2)
  - PAROSMIA [None]
  - PHARMACEUTICAL PRODUCT COMPLAINT [None]
